FAERS Safety Report 5375369-4 (Version None)
Quarter: 2007Q2

REPORT INFORMATION
  Report Type: 
  Country: None (occurrence: None)
  Receive Date: 20070622
  Receipt Date: 20060517
  Transmission Date: 20071010
  Serious: Yes (Hospitalization, Other)
  Sender: FDA-Public Use
  Company Number: 27581

PATIENT
  Age: 16 Year
  Sex: Male
  Weight: 40 kg

DRUGS (1)
  1. PAMIDRONATE DISODIUM [Suspect]
     Indication: HYPERCALCAEMIA
     Dosage: 30MG/IV
     Route: 042
     Dates: start: 20060403, end: 20060418

REACTIONS (1)
  - OEDEMA [None]
